FAERS Safety Report 23362511 (Version 1)
Quarter: 2024Q1

REPORT INFORMATION
  Report Type: Spontaneous
  Country: US (occurrence: None)
  Receive Date: 20240103
  Receipt Date: 20240103
  Transmission Date: 20240410
  Serious: Yes (Other)
  Sender: FDA-Public Use
  Company Number: None

PATIENT
  Age: 69 Year
  Sex: Female
  Weight: 60.75 kg

DRUGS (10)
  1. DEBROX [Suspect]
     Active Substance: CARBAMIDE PEROXIDE
     Indication: Cerumen removal
     Route: 001
     Dates: start: 20240102, end: 20240102
  2. Pentassa [Concomitant]
  3. ASCORBIC ACID [Concomitant]
     Active Substance: ASCORBIC ACID
  4. vitamins B [Concomitant]
  5. POTASSIUM [Concomitant]
     Active Substance: POTASSIUM
  6. MAGNESIUM [Concomitant]
     Active Substance: MAGNESIUM
  7. FOLIC ACID [Concomitant]
     Active Substance: FOLIC ACID
  8. PANTOTHENIC ACID [Concomitant]
     Active Substance: PANTOTHENIC ACID
  9. omega [Concomitant]
  10. lions mane [Concomitant]

REACTIONS (6)
  - Nausea [None]
  - Dizziness [None]
  - Ear pain [None]
  - Tinnitus [None]
  - Headache [None]
  - Gait disturbance [None]

NARRATIVE: CASE EVENT DATE: 20240102
